FAERS Safety Report 8777727 (Version 3)
Quarter: 2012Q4

REPORT INFORMATION
  Report Type: 
  Country: JP (occurrence: JP)
  Receive Date: 20120911
  Receipt Date: 20121217
  Transmission Date: 20130627
  Serious: Yes (Death, Hospitalization, Other)
  Sender: FDA-Public Use
  Company Number: JP-ASTELLAS-2012US007585

PATIENT
  Age: 77 Year
  Sex: Female
  Weight: 50 kg

DRUGS (11)
  1. TARCEVA [Suspect]
     Indication: LUNG SQUAMOUS CELL CARCINOMA STAGE UNSPECIFIED
     Dosage: 150 mg, UID/QD
     Route: 048
     Dates: start: 20120706, end: 20120719
  2. ASTOMIN [Suspect]
     Indication: COUGH
     Dosage: 20 g, tid
     Route: 048
     Dates: start: 20110413, end: 20120719
  3. ASTOMIN [Suspect]
     Indication: LUNG SQUAMOUS CELL CARCINOMA STAGE UNSPECIFIED
  4. AMLODIPINE [Concomitant]
     Indication: HYPERTENSION
     Dosage: 5 mg, UID/QD
     Route: 048
     Dates: start: 20120719
  5. ENSURE                             /07499801/ [Concomitant]
     Indication: MEDICAL DIET
     Dosage: 250 ul, UID/QD
     Route: 048
     Dates: start: 20120302, end: 20120719
  6. LIPITOR [Concomitant]
     Indication: HYPERLIPIDAEMIA
     Dosage: 5 mg, UID/QD
     Route: 048
     Dates: end: 20120719
  7. CODEINE PHOSPHATE [Concomitant]
     Indication: COUGH
     Dosage: 2 g, tid
     Route: 048
     Dates: start: 20111020, end: 20120719
  8. PURSENNID [Concomitant]
     Indication: CONSTIPATION
     Dosage: 24 g, UID/QD
     Route: 048
     Dates: end: 20120719
  9. RIKKUNSHI-TO [Concomitant]
     Indication: DECREASED APPETITE
     Dosage: 2.5 g, tid
     Route: 048
     Dates: start: 20120413, end: 20120719
  10. CARBOCISTEINE [Concomitant]
     Indication: BRONCHITIS
     Dosage: 500 mg, tid
     Route: 048
     Dates: start: 20120622, end: 20120719
  11. FUROSEMIDE [Concomitant]
     Indication: PLEURAL EFFUSION
     Dosage: 20 mg, UID/QD
     Route: 048
     Dates: start: 20120626, end: 20120719

REACTIONS (9)
  - Disseminated intravascular coagulation [Unknown]
  - Multi-organ failure [Unknown]
  - Hepatic function abnormal [Fatal]
  - Interstitial lung disease [Fatal]
  - Pneumonia bacterial [Unknown]
  - Acute respiratory distress syndrome [Unknown]
  - Decreased appetite [Unknown]
  - Somnolence [Unknown]
  - Malaise [Unknown]
